FAERS Safety Report 16667776 (Version 5)
Quarter: 2019Q3

REPORT INFORMATION
  Report Type: Report from Study
  Country: None (occurrence: HU)
  Receive Date: 20190805
  Receipt Date: 20190913
  Transmission Date: 20191004
  Serious: Yes (Death, Hospitalization)
  Sender: FDA-Public Use
  Company Number: HU-ABBVIE-19K-076-2873580-00

PATIENT
  Age: 77 Year
  Sex: Male

DRUGS (5)
  1. DUODOPA [Suspect]
     Active Substance: CARBIDOPA\LEVODOPA
     Dosage: CD 5.8 ML/H DURING THE DAY; CD 3.5 ML/H DURING NIGHT
     Route: 050
     Dates: end: 2019
  2. BISOBLOCK [Concomitant]
     Active Substance: BISOPROLOL FUMARATE
     Indication: HYPERTENSION
     Route: 048
  3. ASACTAL [Concomitant]
     Active Substance: ASPIRIN
     Indication: PROPHYLAXIS
     Route: 048
     Dates: start: 2009
  4. COVEREX AS [Concomitant]
     Active Substance: PERINDOPRIL ARGININE
     Indication: HYPERTENSION
     Dosage: IN THE EVENING
     Route: 048
     Dates: start: 2013
  5. DUODOPA [Suspect]
     Active Substance: CARBIDOPA\LEVODOPA
     Indication: PARKINSON^S DISEASE
     Dosage: CD 6.7 ML/H DURING DAY; CD 4.2 ML/H DURING NIGHT;ED 2.0 ML?20 MG/ML 5 MG/ML
     Route: 050
     Dates: start: 20150307

REACTIONS (9)
  - Asthenia [Not Recovered/Not Resolved]
  - Hyperkinesia [Recovered/Resolved]
  - Pneumonia [Fatal]
  - Respiratory failure [Fatal]
  - Gait disturbance [Not Recovered/Not Resolved]
  - Urinary tract infection [Recovered/Resolved]
  - Diverticulum oesophageal [Unknown]
  - Altered state of consciousness [Recovering/Resolving]
  - Overdose [Unknown]

NARRATIVE: CASE EVENT DATE: 201906
